FAERS Safety Report 11068499 (Version 1)
Quarter: 2015Q2

REPORT INFORMATION
  Report Type: Spontaneous
  Country: US (occurrence: US)
  Receive Date: 20150427
  Receipt Date: 20150427
  Transmission Date: 20150821
  Serious: No
  Sender: FDA-Public Use
  Company Number: US-PFIZER INC-2015138287

PATIENT
  Age: 65 Year
  Sex: Female

DRUGS (2)
  1. WELLBUTRIN SR [Concomitant]
     Active Substance: BUPROPION HYDROCHLORIDE
     Dosage: 100 MG, 2X/DAY
     Route: 048
  2. PROVERA [Suspect]
     Active Substance: MEDROXYPROGESTERONE ACETATE
     Indication: VAGINAL HAEMORRHAGE
     Dosage: 2.5 MG, 1X/DAY
     Route: 048
     Dates: start: 20150408, end: 20150413

REACTIONS (1)
  - Drug ineffective [Unknown]

NARRATIVE: CASE EVENT DATE: 201504
